FAERS Safety Report 7546813-9 (Version None)
Quarter: 2011Q2

REPORT INFORMATION
  Report Type: 
  Country: None (occurrence: None)
  Receive Date: 20110614
  Receipt Date: 20110606
  Transmission Date: 20111010
  Serious: Yes (Other)
  Sender: FDA-Public Use
  Company Number: JP-ROCHE-778320

PATIENT
  Age: 70 Year
  Sex: Male

DRUGS (3)
  1. AVASTIN [Suspect]
     Indication: LUNG NEOPLASM MALIGNANT
     Route: 041
  2. PACLITAXEL [Concomitant]
     Route: 042
  3. CARBOPLATIN [Concomitant]
     Route: 041

REACTIONS (2)
  - SUPERIOR VENA CAVA SYNDROME [None]
  - ERYTHEMA [None]
